FAERS Safety Report 15687376 (Version 1)
Quarter: 2018Q4

REPORT INFORMATION
  Report Type: Spontaneous
  Country: DE (occurrence: DE)
  Receive Date: 20181205
  Receipt Date: 20181205
  Transmission Date: 20190205
  Serious: Yes (Congenital Anomaly, Other)
  Sender: FDA-Public Use
  Company Number: DE-SUN PHARMACEUTICAL INDUSTRIES LTD-2018RR-189740

PATIENT
  Sex: Female
  Weight: 3 kg

DRUGS (7)
  1. METOPROLOL. [Suspect]
     Active Substance: METOPROLOL
     Indication: GESTATIONAL HYPERTENSION
     Dosage: 125 [MG/D ]
     Route: 064
  2. LANTUS 100 I.E./ML INJEKTIONSLOESUNG [Concomitant]
     Indication: GESTATIONAL DIABETES
     Dosage: 12 [IE/D ] ()
     Route: 064
  3. PREDNISOLON [Concomitant]
     Active Substance: PREDNISOLONE
     Indication: PROPHYLAXIS OF ABORTION
     Dosage: 15 [MG/D ]
     Route: 064
  4. SERTRALINE [Suspect]
     Active Substance: SERTRALINE HYDROCHLORIDE
     Indication: DEPRESSION
     Dosage: 200 [MG/D ] ()
     Route: 064
     Dates: start: 20170320, end: 20171211
  5. L-THYROXIN [Concomitant]
     Active Substance: LEVOTHYROXINE SODIUM
     Indication: AUTOIMMUNE THYROIDITIS
     Dosage: 200 [?G/D ]/ VARYING DOSAGES BETWEEN 150 AND 200?G/D ()
     Route: 064
     Dates: start: 20170320, end: 20171211
  6. ACTRAPID FLEXPEN 100 I.E./ML [Concomitant]
     Indication: GESTATIONAL DIABETES
     Dosage: 28 [IE/D (BIS 10) ] ()
     Route: 064
  7. FOLSAURE RATIOPHARM 5 MG [Concomitant]
     Indication: PROPHYLAXIS OF NEURAL TUBE DEFECT
     Dosage: 5 [MG/D ]
     Route: 064
     Dates: start: 20170320, end: 20171211

REACTIONS (3)
  - Renal dysplasia [Unknown]
  - Congenital hydronephrosis [Recovering/Resolving]
  - Agitation neonatal [Recovered/Resolved]
